FAERS Safety Report 15734068 (Version 1)
Quarter: 2018Q4

REPORT INFORMATION
  Report Type: Spontaneous
  Country: US (occurrence: US)
  Receive Date: 20181217
  Receipt Date: 20181217
  Transmission Date: 20190205
  Serious: Yes (Death)
  Sender: FDA-Public Use
  Company Number: None

PATIENT
  Age: 32 Year
  Sex: Male

DRUGS (3)
  1. DEXTROMETHORPHAN [Concomitant]
     Active Substance: DEXTROMETHORPHAN
  2. CLONAZEPAM. [Concomitant]
     Active Substance: CLONAZEPAM
  3. KRATOM [Suspect]
     Active Substance: MITRAGYNINE\HERBALS

REACTIONS (1)
  - Drug screen positive [None]

NARRATIVE: CASE EVENT DATE: 20181102
